FAERS Safety Report 9183476 (Version 1)
Quarter: 2013Q1

REPORT INFORMATION
  Report Type: Spontaneous
  Country: US (occurrence: US)
  Receive Date: 20130322
  Receipt Date: 20130322
  Transmission Date: 20140127
  Serious: No
  Sender: FDA-Public Use
  Company Number: US-BRISTOL-MYERS SQUIBB COMPANY-16428625

PATIENT
  Age: 60 Year
  Sex: Female
  Weight: 61.22 kg

DRUGS (2)
  1. ERBITUX [Suspect]
     Indication: COLON CANCER METASTATIC
     Dates: start: 20120117
  2. IRINOTECAN [Suspect]
     Indication: COLON CANCER METASTATIC
     Dosage: 1 DF = ONE HALF OF 825 MG
     Dates: start: 20120117

REACTIONS (6)
  - Migraine [Recovered/Resolved]
  - Vomiting [Unknown]
  - Asthenia [Unknown]
  - Nausea [Recovered/Resolved]
  - Rash [Unknown]
  - Alopecia [Not Recovered/Not Resolved]
